FAERS Safety Report 7096393-X (Version None)
Quarter: 2010Q4

REPORT INFORMATION
  Report Type: 
  Country: None (occurrence: None)
  Receive Date: 20101110
  Receipt Date: 20101110
  Transmission Date: 20110411
  Serious: No
  Sender: FDA-Public Use
  Company Number: None

PATIENT
  Age: 38 Year
  Sex: Female
  Weight: 53.5244 kg

DRUGS (1)
  1. BOTOX [Suspect]
     Dosage: I ONLY WENT TO HIM 1 TIME

REACTIONS (8)
  - ANXIETY [None]
  - ASTHENIA [None]
  - EYELID PTOSIS [None]
  - FATIGUE [None]
  - HEART RATE INCREASED [None]
  - HELICOBACTER GASTRITIS [None]
  - INCORRECT DOSE ADMINISTERED [None]
  - NAUSEA [None]
